FAERS Safety Report 5894810-1 (Version None)
Quarter: 2008Q3

REPORT INFORMATION
  Report Type: 
  Country: None (occurrence: None)
  Receive Date: 20080828
  Receipt Date: 20080404
  Transmission Date: 20090109
  Serious: Yes (Hospitalization, Other)
  Sender: FDA-Public Use
  Company Number: 163865USA

PATIENT
  Age: 82 Year
  Sex: Female
  Weight: 60.782 kg

DRUGS (4)
  1. BACLOFEN [Suspect]
     Indication: MUSCLE CONTRACTURE
     Dosage: 60 MG (20 MG, 3 IN 1 D),ORAL
     Route: 048
     Dates: start: 20061227, end: 20071009
  2. BACLOFEN [Suspect]
     Indication: MUSCLE SPASMS
     Dosage: 60 MG (20 MG, 3 IN 1 D),ORAL
     Route: 048
     Dates: start: 20061227, end: 20071009
  3. BACTRIM [Suspect]
     Indication: URINARY TRACT INFECTION
     Dates: start: 20071012
  4. WARFARIN SODIUM [Concomitant]

REACTIONS (7)
  - BODY TEMPERATURE INCREASED [None]
  - CONFUSIONAL STATE [None]
  - CONVULSION [None]
  - FLUSHING [None]
  - HALLUCINATION [None]
  - TREMOR [None]
  - VOMITING [None]
